FAERS Safety Report 11158651 (Version 1)
Quarter: 2015Q2

REPORT INFORMATION
  Report Type: Spontaneous
  Country: US (occurrence: US)
  Receive Date: 20150603
  Receipt Date: 20150603
  Transmission Date: 20150821
  Serious: No
  Sender: FDA-Public Use
  Company Number: US-PFIZER INC-2015181624

PATIENT
  Age: 63 Year
  Sex: Male
  Weight: 129 kg

DRUGS (2)
  1. LYRICA [Suspect]
     Active Substance: PREGABALIN
     Indication: NEURALGIA
     Dosage: 25 MG, 2X/DAY
  2. ALBUTEROL. [Concomitant]
     Active Substance: ALBUTEROL
     Indication: SNEEZING
     Dosage: (2.5MG/3 ML EVERY 6 HOURS),AS NEEDED

REACTIONS (2)
  - Drug ineffective [Unknown]
  - Pain [Unknown]
